FAERS Safety Report 10419505 (Version 2)
Quarter: 2014Q3

REPORT INFORMATION
  Report Type: Report from Study
  Country: JP (occurrence: JP)
  Receive Date: 20140829
  Receipt Date: 20140911
  Transmission Date: 20150326
  Serious: Yes (Death)
  Sender: FDA-Public Use
  Company Number: PHHY2014JP107411

PATIENT
  Sex: Male
  Weight: 37 kg

DRUGS (7)
  1. LENDORMIN DAINIPPO [Concomitant]
     Active Substance: BROTIZOLAM
     Indication: INSOMNIA
     Dosage: 0.3 MG, UNK
     Route: 048
     Dates: end: 20140416
  2. DIART [Concomitant]
     Active Substance: AZOSEMIDE
     Indication: CARDIAC FAILURE CHRONIC
     Dosage: 30 MG, UNK
     Route: 048
     Dates: end: 20140416
  3. UBRETID [Concomitant]
     Active Substance: DISTIGMINE BROMIDE
     Indication: BENIGN PROSTATIC HYPERPLASIA
     Dosage: 5 MG, UNK
     Route: 048
     Dates: end: 20140416
  4. THEO DUR [Concomitant]
     Indication: CHRONIC OBSTRUCTIVE PULMONARY DISEASE
     Dosage: 400 MG, UNK
     Route: 048
     Dates: end: 20140416
  5. INDACATEROL [Suspect]
     Active Substance: INDACATEROL
     Indication: CHRONIC OBSTRUCTIVE PULMONARY DISEASE
     Dosage: 150 UG, UNK
     Route: 055
     Dates: start: 20130530, end: 20140416
  6. FLIVAS [Concomitant]
     Active Substance: NAFTOPIDIL
     Indication: BENIGN PROSTATIC HYPERPLASIA
     Dosage: 75 MG, UNK
     Route: 048
     Dates: end: 20140416
  7. ADOAIR [Concomitant]
     Active Substance: FLUTICASONE PROPIONATE\SALMETEROL XINAFOATE
     Indication: CHRONIC OBSTRUCTIVE PULMONARY DISEASE
     Dosage: 1000 UG, UNK
     Route: 055
     Dates: end: 20130529

REACTIONS (2)
  - Pneumothorax spontaneous [Fatal]
  - Respiratory failure [Fatal]
